FAERS Safety Report 19814068 (Version 1)
Quarter: 2021Q3

REPORT INFORMATION
  Report Type: Spontaneous
  Country: US (occurrence: US)
  Receive Date: 20210910
  Receipt Date: 20210910
  Transmission Date: 20211014
  Serious: No
  Sender: FDA-Public Use
  Company Number: None

PATIENT
  Age: 50 Year
  Sex: Female

DRUGS (7)
  1. REGEN?COV [Suspect]
     Active Substance: CASIRIVIMAB\IMDEVIMAB
     Indication: COVID-19
     Dates: start: 20210908, end: 20210908
  2. VIT D [Concomitant]
     Active Substance: VITAMIN D NOS
  3. MULTI [Concomitant]
  4. QUERCITIN [Concomitant]
  5. C [Concomitant]
  6. FISH OIL [Concomitant]
     Active Substance: FISH OIL
  7. COMPOUNDED T3/T4 [Concomitant]

REACTIONS (1)
  - Rash pruritic [None]

NARRATIVE: CASE EVENT DATE: 20210909
